FAERS Safety Report 7007126-7 (Version None)
Quarter: 2010Q3

REPORT INFORMATION
  Report Type: 
  Country: None (occurrence: None)
  Receive Date: 20100922
  Receipt Date: 20100916
  Transmission Date: 20110219
  Serious: Yes (Other)
  Sender: FDA-Public Use
  Company Number: US-B.I. PHARMACEUTICALS,INC./RIDGEFIELD-2010-BP-10606BP

PATIENT
  Age: 72 Year
  Sex: Male

DRUGS (9)
  1. SPIRIVA [Suspect]
     Indication: CHRONIC OBSTRUCTIVE PULMONARY DISEASE
     Dosage: 18 MCG
     Route: 055
     Dates: start: 20060101
  2. ATENOLOL [Concomitant]
     Indication: HYPERTENSION
     Dosage: 100 MG
  3. PROAIR HFA [Concomitant]
     Indication: CHRONIC OBSTRUCTIVE PULMONARY DISEASE
  4. VENTOLIN [Concomitant]
     Indication: DYSPNOEA
  5. PREDNISONE [Concomitant]
     Indication: NEUROPATHY PERIPHERAL
     Dosage: 5 MG
  6. GABAPENTIN [Concomitant]
     Indication: NEUROPATHY PERIPHERAL
     Dosage: 1800 MG
  7. CLARITIN [Concomitant]
     Indication: MULTIPLE ALLERGIES
  8. VITAMIN D [Concomitant]
     Indication: PROPHYLAXIS
  9. CENTRUM SILVER [Concomitant]
     Indication: SUPPLEMENTATION THERAPY

REACTIONS (2)
  - DYSPNOEA [None]
  - LYMPHOMA [None]
